APPROVED DRUG PRODUCT: QUETIAPINE FUMARATE
Active Ingredient: QUETIAPINE FUMARATE
Strength: EQ 150MG BASE
Dosage Form/Route: TABLET;ORAL
Application: A201504 | Product #004 | TE Code: AB
Applicant: ALKEM LABORATORIES LTD
Approved: Feb 12, 2013 | RLD: No | RS: No | Type: RX